FAERS Safety Report 15700359 (Version 2)
Quarter: 2020Q1

REPORT INFORMATION
  Report Type: Spontaneous
  Country: US (occurrence: US)
  Receive Date: 20181207
  Receipt Date: 20200101
  Transmission Date: 20200409
  Serious: Yes (Other)
  Sender: FDA-Public Use
  Company Number: US-ASTRAZENECA-2018SF58731

PATIENT
  Age: 23898 Day
  Sex: Female
  Weight: 147.4 kg

DRUGS (43)
  1. PRILOSEC [Suspect]
     Active Substance: OMEPRAZOLE MAGNESIUM
     Indication: GASTROOESOPHAGEAL REFLUX DISEASE
     Dosage: 40 MG DAILY, GENERIC
     Route: 065
     Dates: start: 2006
  2. GLIPIZIDE. [Concomitant]
     Active Substance: GLIPIZIDE
     Indication: DIABETES MELLITUS
  3. FEXOFENADINE [Concomitant]
     Active Substance: FEXOFENADINE HYDROCHLORIDE
     Indication: ANTIALLERGIC THERAPY
     Dates: start: 2006, end: 2011
  4. ZOFRAN [Concomitant]
     Active Substance: ONDANSETRON HYDROCHLORIDE
  5. DITROPAN [Concomitant]
     Active Substance: OXYBUTYNIN CHLORIDE
  6. NITROFURAN [Concomitant]
     Active Substance: NITROFURANTOIN
  7. ASPIRIN. [Concomitant]
     Active Substance: ASPIRIN
  8. JANUVIA [Concomitant]
     Active Substance: SITAGLIPTIN PHOSPHATE
  9. NEXIUM [Suspect]
     Active Substance: ESOMEPRAZOLE MAGNESIUM
     Indication: GASTROOESOPHAGEAL REFLUX DISEASE
     Dosage: 40 MG DAILY GENERIC
     Route: 065
     Dates: start: 2015
  10. PANTOPRAZOLE [Suspect]
     Active Substance: PANTOPRAZOLE
     Indication: GASTROOESOPHAGEAL REFLUX DISEASE
     Dosage: 40 MG TWICE A DAY
     Route: 065
     Dates: start: 2014
  11. KLOR-CON [Concomitant]
     Active Substance: POTASSIUM CHLORIDE
     Indication: SUPPLEMENTATION THERAPY
     Dates: start: 2003, end: 2014
  12. METRONIDAZOLE. [Concomitant]
     Active Substance: METRONIDAZOLE
     Indication: ANTIBIOTIC THERAPY
     Dates: start: 2006, end: 2010
  13. KEFLEX [Concomitant]
     Active Substance: CEPHALEXIN
  14. LYRICA [Concomitant]
     Active Substance: PREGABALIN
  15. GENTAMICIN. [Concomitant]
     Active Substance: GENTAMICIN
  16. PRILOSEC [Suspect]
     Active Substance: OMEPRAZOLE MAGNESIUM
     Indication: GASTROOESOPHAGEAL REFLUX DISEASE
     Dosage: 20 MG DAILY
     Route: 048
     Dates: start: 2002, end: 2003
  17. ZOLOFT [Concomitant]
     Active Substance: SERTRALINE HYDROCHLORIDE
     Indication: AFFECTIVE DISORDER
     Dates: start: 2002, end: 2006
  18. GABAPENTIN. [Concomitant]
     Active Substance: GABAPENTIN
     Indication: NEURALGIA
     Dates: start: 2005, end: 2017
  19. LEVOTHYROXINE. [Concomitant]
     Active Substance: LEVOTHYROXINE
  20. WARFARIN [Concomitant]
     Active Substance: WARFARIN
  21. PRILOSEC [Suspect]
     Active Substance: OMEPRAZOLE MAGNESIUM
     Indication: GASTROOESOPHAGEAL REFLUX DISEASE
     Dosage: 20 MG DAILY
     Route: 048
     Dates: start: 2006
  22. PRILOSEC [Suspect]
     Active Substance: OMEPRAZOLE MAGNESIUM
     Indication: GASTROOESOPHAGEAL REFLUX DISEASE
     Dosage: 40 MG DAILY, GENERIC
     Route: 065
     Dates: start: 2003
  23. PRAVACHOL [Concomitant]
     Active Substance: PRAVASTATIN SODIUM
  24. METFORMIN [Concomitant]
     Active Substance: METFORMIN HYDROCHLORIDE
  25. LISINOPRIL. [Concomitant]
     Active Substance: LISINOPRIL
     Indication: BLOOD PRESSURE MEASUREMENT
     Dates: start: 2005, end: 2017
  26. FUROSEMIDE. [Concomitant]
     Active Substance: FUROSEMIDE
     Indication: DIURETIC THERAPY
     Dates: start: 2002, end: 2014
  27. CRESTOR [Concomitant]
     Active Substance: ROSUVASTATIN CALCIUM
     Indication: BLOOD CHOLESTEROL
     Dates: start: 2005, end: 2010
  28. VITAMIN C [Concomitant]
     Active Substance: ASCORBIC ACID
     Dates: start: 2009, end: 2019
  29. CODEINE [Concomitant]
     Active Substance: CODEINE
  30. LEVAQUIN [Concomitant]
     Active Substance: LEVOFLOXACIN
  31. REQUIP [Concomitant]
     Active Substance: ROPINIROLE HYDROCHLORIDE
  32. NEXIUM [Suspect]
     Active Substance: ESOMEPRAZOLE MAGNESIUM
     Indication: GASTROOESOPHAGEAL REFLUX DISEASE
     Dosage: 40 MG DAILY
     Route: 048
     Dates: start: 20161010
  33. MELOXICAM. [Concomitant]
     Active Substance: MELOXICAM
     Indication: PAIN
     Dates: start: 2006, end: 2010
  34. IRON [Concomitant]
     Active Substance: IRON
     Dates: start: 2009, end: 2019
  35. TUMS [Concomitant]
     Active Substance: CALCIUM CARBONATE
     Dosage: 2 TABLETS AT A TIME
  36. ALDACTONE [Concomitant]
     Active Substance: SPIRONOLACTONE
  37. NEXIUM [Suspect]
     Active Substance: ESOMEPRAZOLE MAGNESIUM
     Indication: GASTROOESOPHAGEAL REFLUX DISEASE
     Dosage: 40 MG DAILY
     Route: 048
     Dates: start: 2003, end: 2017
  38. ESTRADIOL. [Concomitant]
     Active Substance: ESTRADIOL
     Indication: HORMONE THERAPY
     Dates: start: 2002, end: 2011
  39. VITAMIN B12 [Concomitant]
     Active Substance: CYANOCOBALAMIN
     Dates: start: 2009, end: 2019
  40. MAGNESIUM [Concomitant]
     Active Substance: MAGNESIUM
     Dates: start: 2009, end: 2019
  41. TRIMPEX [Concomitant]
     Active Substance: TRIMETHOPRIM
  42. MODAFINIL. [Concomitant]
     Active Substance: MODAFINIL
  43. IMITREX [Concomitant]
     Active Substance: SUMATRIPTAN SUCCINATE

REACTIONS (3)
  - Chronic kidney disease [Unknown]
  - Acute kidney injury [Not Recovered/Not Resolved]
  - Renal failure [Unknown]

NARRATIVE: CASE EVENT DATE: 20161213
